FAERS Safety Report 11191596 (Version 1)
Quarter: 2015Q2

REPORT INFORMATION
  Report Type: Spontaneous
  Country: TW (occurrence: TW)
  Receive Date: 20150616
  Receipt Date: 20150616
  Transmission Date: 20150821
  Serious: Yes (Death, Life-Threatening, Hospitalization)
  Sender: FDA-Public Use
  Company Number: TW-ACTELION-A-CH2015-119329

PATIENT
  Age: 43 Year
  Sex: Female

DRUGS (4)
  1. TRACLEER [Suspect]
     Active Substance: BOSENTAN\BOSENTAN MONOHYDRATE
     Indication: PULMONARY ARTERIAL HYPERTENSION
     Dosage: 125 MG, BID
     Route: 048
     Dates: start: 20120912, end: 20150608
  2. REVATIO [Concomitant]
     Active Substance: SILDENAFIL CITRATE
     Dosage: 20 MG, TID
     Route: 048
     Dates: start: 20130206
  3. TRACLEER [Suspect]
     Active Substance: BOSENTAN\BOSENTAN MONOHYDRATE
     Dosage: 62.5 MG, BID
     Route: 048
     Dates: start: 20120822, end: 20120911
  4. REMODULIN [Concomitant]
     Active Substance: TREPROSTINIL
     Dosage: 100 NG/KG, PER MIN
     Dates: start: 20140213

REACTIONS (5)
  - Haematochezia [Unknown]
  - Transfusion [Unknown]
  - Blood pressure decreased [Not Recovered/Not Resolved]
  - Cardio-respiratory arrest [Fatal]
  - Haemorrhoidal haemorrhage [Fatal]

NARRATIVE: CASE EVENT DATE: 20150603
